FAERS Safety Report 11976420 (Version 1)
Quarter: 2016Q1

REPORT INFORMATION
  Report Type: Spontaneous
  Country: US (occurrence: None)
  Receive Date: 20160128
  Receipt Date: 20160128
  Transmission Date: 20160526
  Serious: No
  Sender: FDA-Public Use
  Company Number: None

PATIENT
  Age: 43 Year
  Sex: Female
  Weight: 55.34 kg

DRUGS (14)
  1. NOVOLOG [Concomitant]
     Active Substance: INSULIN ASPART
  2. ZINC [Concomitant]
     Active Substance: ZINC\ZINC CHLORIDE
  3. CARNOSINE [Concomitant]
     Active Substance: CARNOSINE
  4. ACTIVE B12 [Concomitant]
  5. LISINOPRIL. [Concomitant]
     Active Substance: LISINOPRIL
  6. VITAMIN C [Concomitant]
     Active Substance: ASCORBIC ACID
  7. VENOFER [Suspect]
     Active Substance: IRON SUCROSE
     Indication: IRON DEFICIENCY ANAEMIA
     Dosage: INTO A VEIN
     Dates: start: 20150120, end: 20150120
  8. PREDNISONE. [Concomitant]
     Active Substance: PREDNISONE
  9. VENOFER [Suspect]
     Active Substance: IRON SUCROSE
     Indication: CHRONIC KIDNEY DISEASE
     Dosage: INTO A VEIN
     Dates: start: 20150120, end: 20150120
  10. DEXCOM [Concomitant]
  11. LANTUS [Concomitant]
     Active Substance: INSULIN GLARGINE
  12. FOLATE MOTRIN [Concomitant]
  13. SYNTHROID [Concomitant]
     Active Substance: LEVOTHYROXINE SODIUM
  14. VITAMIN D3 [Concomitant]
     Active Substance: CHOLECALCIFEROL

REACTIONS (8)
  - Influenza like illness [None]
  - Fatigue [None]
  - Hyperglycaemia [None]
  - Peripheral swelling [None]
  - Chest pain [None]
  - Arthralgia [None]
  - Nausea [None]
  - Back pain [None]

NARRATIVE: CASE EVENT DATE: 20150120
